FAERS Safety Report 9297364 (Version 1)
Quarter: 2013Q2

REPORT INFORMATION
  Report Type: Spontaneous
  Country: US (occurrence: US)
  Receive Date: 20130520
  Receipt Date: 20130520
  Transmission Date: 20140414
  Serious: No
  Sender: FDA-Public Use
  Company Number: US-009507513-1305USA010342

PATIENT
  Age: 41 Year
  Sex: Female

DRUGS (3)
  1. SINGULAIR [Suspect]
     Indication: HYPERSENSITIVITY
     Dosage: 10 MG, QD
     Route: 048
     Dates: start: 20130415
  2. CITALOPRAM [Concomitant]
  3. ZYRTEC [Concomitant]

REACTIONS (1)
  - Pruritus [Not Recovered/Not Resolved]
